FAERS Safety Report 4284725-7 (Version None)
Quarter: 2004Q1

REPORT INFORMATION
  Report Type: 
  Country: None (occurrence: None)
  Receive Date: 20040203
  Receipt Date: 20040129
  Transmission Date: 20041129
  Serious: Yes (Death)
  Sender: FDA-Public Use
  Company Number: 03-12-1593

PATIENT
  Age: 79 Year
  Sex: Female

DRUGS (7)
  1. CLOZAPINE [Suspect]
     Indication: DEMENTIA ALZHEIMER'S TYPE
     Dosage: 37.5 MG QD ORAL
     Route: 048
     Dates: start: 20030201, end: 20031101
  2. CLOZAPINE [Suspect]
     Indication: PSYCHOTIC DISORDER
     Dosage: 37.5 MG QD ORAL
     Route: 048
     Dates: start: 20030201, end: 20031101
  3. DIGOXIN [Concomitant]
  4. CARDIZEM CD [Concomitant]
  5. SYNTHROID [Concomitant]
  6. ARICEPT [Concomitant]
  7. REMERON [Concomitant]

REACTIONS (3)
  - CARDIAC DEATH [None]
  - CARDIAC FAILURE CONGESTIVE [None]
  - CEREBROVASCULAR ACCIDENT [None]
